FAERS Safety Report 7115245-X (Version None)
Quarter: 2010Q4

REPORT INFORMATION
  Report Type: 
  Country: None (occurrence: None)
  Receive Date: 20101122
  Receipt Date: 20100518
  Transmission Date: 20110411
  Serious: No
  Sender: FDA-Public Use
  Company Number: A0860210A

PATIENT
  Sex: Male

DRUGS (2)
  1. EVOCLIN [Suspect]
     Indication: FOLLICULITIS
     Dosage: 1APP TWICE PER DAY
     Route: 061
     Dates: start: 20090101
  2. ACTONEL [Concomitant]

REACTIONS (1)
  - DRUG INEFFECTIVE [None]
